FAERS Safety Report 4381328-0 (Version None)
Quarter: 2004Q2

REPORT INFORMATION
  Report Type: 
  Country: None (occurrence: None)
  Receive Date: 20040621
  Receipt Date: 20040525
  Transmission Date: 20050107
  Serious: Yes (Death, Hospitalization)
  Sender: FDA-Public Use
  Company Number: CH-AMGEN-US078334

PATIENT
  Age: 75 Year
  Sex: Female

DRUGS (1)
  1. ENBREL [Suspect]
     Indication: RHEUMATOID ARTHRITIS
     Route: 058
     Dates: start: 20040404, end: 20040511

REACTIONS (6)
  - AGITATION [None]
  - APHASIA [None]
  - COMA [None]
  - GRAND MAL CONVULSION [None]
  - LIVER SCAN ABNORMAL [None]
  - RESPIRATORY FAILURE [None]
